FAERS Safety Report 5991126-X (Version None)
Quarter: 2008Q4

REPORT INFORMATION
  Report Type: 
  Country: None (occurrence: None)
  Receive Date: 20081209
  Receipt Date: 20081125
  Transmission Date: 20090506
  Serious: Yes (Hospitalization, Other)
  Sender: FDA-Public Use
  Company Number: 2008SP002985

PATIENT
  Age: 67 Year
  Sex: Male

DRUGS (5)
  1. XOPENEX HFA [Suspect]
     Indication: CHRONIC OBSTRUCTIVE PULMONARY DISEASE
     Dosage: 90 UG; PRN; INHALATION
     Route: 055
  2. XOPENEX HFA [Suspect]
     Indication: EMPHYSEMA
     Dosage: 90 UG; PRN; INHALATION
     Route: 055
  3. SPIRIVA [Concomitant]
  4. ASMANEX TWISTHALER [Concomitant]
  5. FORADIL [Concomitant]

REACTIONS (6)
  - CONSTIPATION [None]
  - HYPOTENSION [None]
  - ILEUS [None]
  - LUNG INFECTION [None]
  - NO THERAPEUTIC RESPONSE [None]
  - TACHYCARDIA [None]
